FAERS Safety Report 5190207-0 (Version None)
Quarter: 2006Q4

REPORT INFORMATION
  Report Type: 
  Country: None (occurrence: None)
  Receive Date: 20061222
  Receipt Date: 20061002
  Transmission Date: 20070319
  Serious: No
  Sender: FDA-Public Use
  Company Number: US-AMGEN-US195362

PATIENT
  Age: 72 Year
  Sex: Female

DRUGS (8)
  1. NEULASTA [Suspect]
     Indication: CHEMOTHERAPY
     Route: 058
     Dates: start: 20060123, end: 20060803
  2. ARANESP [Suspect]
     Indication: ANAEMIA OF MALIGNANT DISEASE
     Dates: start: 20060220, end: 20060803
  3. TAXOL [Concomitant]
  4. CARBOPLATIN [Concomitant]
  5. GEMZAR [Concomitant]
  6. LEVOXYL [Concomitant]
  7. OXYCODONE HCL [Concomitant]
  8. CEPHALEXIN [Concomitant]

REACTIONS (5)
  - INFECTION [None]
  - MONOPLEGIA [None]
  - PAIN IN EXTREMITY [None]
  - PALPITATIONS [None]
  - SPLENOMEGALY [None]
